FAERS Safety Report 23496002 (Version 1)
Quarter: 2024Q1

REPORT INFORMATION
  Report Type: Spontaneous
  Country: US (occurrence: None)
  Receive Date: 20240207
  Receipt Date: 20240207
  Transmission Date: 20240410
  Serious: No
  Sender: FDA-Public Use
  Company Number: US-ROCHE-3458217

PATIENT
  Age: 53 Year
  Sex: Male

DRUGS (5)
  1. XOLAIR [Suspect]
     Active Substance: OMALIZUMAB
     Indication: Angioedema
     Route: 065
     Dates: start: 2017, end: 2019
  2. BENADRYL [Concomitant]
     Active Substance: DIPHENHYDRAMINE HYDROCHLORIDE
  3. PREDNISONE [Concomitant]
     Active Substance: PREDNISONE
  4. PEPCID [Concomitant]
     Active Substance: FAMOTIDINE
  5. EPINEPHRINE [Concomitant]
     Active Substance: EPINEPHRINE

REACTIONS (2)
  - Off label use [Unknown]
  - No adverse event [Unknown]
